FAERS Safety Report 4342212-1 (Version None)
Quarter: 2004Q1

REPORT INFORMATION
  Report Type: 
  Country: None (occurrence: None)
  Receive Date: 20040329
  Receipt Date: 20031126
  Transmission Date: 20041129
  Serious: No
  Sender: FDA-Public Use
  Company Number: USA031050694

PATIENT
  Age: 25 Year
  Sex: Male

DRUGS (3)
  1. STRATTERA [Suspect]
     Indication: ABNORMAL BEHAVIOUR
     Dosage: 80 MG/DAY
     Dates: start: 20030901, end: 20031020
  2. PAXIL [Concomitant]
  3. ALBUTEROL [Concomitant]

REACTIONS (3)
  - DECREASED APPETITE [None]
  - PERIPHERAL COLDNESS [None]
  - SEMEN ABNORMAL [None]
